FAERS Safety Report 9494187 (Version 6)
Quarter: 2014Q4

REPORT INFORMATION
  Report Type: Report from Study
  Country: DE (occurrence: DE)
  Receive Date: 20130903
  Receipt Date: 20141110
  Transmission Date: 20150529
  Serious: Yes (Hospitalization, Other)
  Sender: FDA-Public Use
  Company Number: DE-ROCHE-1269548

PATIENT
  Age: 75 Year
  Sex: Female
  Weight: 60 kg

DRUGS (11)
  1. ACTONEL [Concomitant]
     Active Substance: RISEDRONATE SODIUM
     Route: 065
  2. IBUHEXAL [Concomitant]
     Active Substance: IBUPROFEN
     Route: 065
  3. NOVAMINSULFON [Concomitant]
     Active Substance: METAMIZOLE
     Route: 065
  4. PREDNISOLON [Concomitant]
     Active Substance: PREDNISOLONE
     Route: 065
  5. CALCILAC (GERMANY) [Concomitant]
     Active Substance: CALCIUM CARBONATE\CHOLECALCIFEROL
     Dosage: CHEWING TABLET
     Route: 065
  6. PANTOZOL [Concomitant]
     Active Substance: PANTOPRAZOLE SODIUM
     Route: 065
  7. SIMVAHEXAL [Concomitant]
     Active Substance: SIMVASTATIN
     Route: 065
  8. TOCILIZUMAB [Suspect]
     Active Substance: TOCILIZUMAB
     Indication: RHEUMATOID ARTHRITIS
     Route: 042
     Dates: start: 20120816, end: 20130405
  9. OMEPRAZOL [Concomitant]
     Active Substance: OMEPRAZOLE
     Route: 065
  10. VERAPAMIL [Concomitant]
     Active Substance: VERAPAMIL HYDROCHLORIDE
     Route: 065
  11. MUCOFALK [Concomitant]
     Route: 065

REACTIONS (2)
  - Skin ulcer [Recovering/Resolving]
  - Joint abscess [Not Recovered/Not Resolved]

NARRATIVE: CASE EVENT DATE: 20130326
